FAERS Safety Report 4892232-3 (Version None)
Quarter: 2006Q1

REPORT INFORMATION
  Report Type: 
  Country: None (occurrence: None)
  Receive Date: 20060125
  Receipt Date: 20060125
  Transmission Date: 20060701
  Serious: No
  Sender: FDA-Public Use
  Company Number: None

PATIENT
  Age: 53 Year
  Sex: Male
  Weight: 59 kg

DRUGS (1)
  1. HEPARIN [Suspect]
     Indication: DEEP VEIN THROMBOSIS
     Dosage: 700U/HR
     Dates: start: 20050719, end: 20050720

REACTIONS (3)
  - ACTIVATED PARTIAL THROMBOPLASTIN TIME PROLONGED [None]
  - HAEMOGLOBIN DECREASED [None]
  - HAEMORRHAGE [None]
